FAERS Safety Report 5589197-8 (Version None)
Quarter: 2008Q1

REPORT INFORMATION
  Report Type: 
  Country: None (occurrence: None)
  Receive Date: 20080113
  Receipt Date: 20080102
  Transmission Date: 20080703
  Serious: Yes (Other)
  Sender: FDA-Public Use
  Company Number: US-JNJFOC-20080102415

PATIENT
  Sex: Female
  Weight: 95.26 kg

DRUGS (3)
  1. FLEXERIL [Suspect]
     Indication: MUSCLE SPASMS
     Dosage: DOSE UNKNOWN, EVERY DAY
     Route: 048
  2. PHENERGAN HCL [Concomitant]
     Indication: VOMITING
     Route: 048
  3. PHENERGAN HCL [Concomitant]
     Indication: NAUSEA
     Dosage: ONE AS NEEDED
     Route: 048

REACTIONS (5)
  - ANXIETY [None]
  - DEPRESSION [None]
  - INFLAMMATION [None]
  - INTENTIONAL DRUG MISUSE [None]
  - THYROID DISORDER [None]
